FAERS Safety Report 14740508 (Version 30)
Quarter: 2024Q3

REPORT INFORMATION
  Report Type: Report from Study
  Country: CA (occurrence: CA)
  Receive Date: 20180410
  Receipt Date: 20240727
  Transmission Date: 20241017
  Serious: Yes (Other)
  Sender: ROCHE
  Company Number: CA-ROCHE-2093315

PATIENT
  Age: 38 Year
  Sex: Female
  Weight: 88.0 kg

DRUGS (15)
  1. OCREVUS [Suspect]
     Active Substance: OCRELIZUMAB
     Indication: Relapsing-remitting multiple sclerosis
     Dosage: 300 MG/10 ML VIALS?300MG DAY 0,14, 600MG EVERY 6MNTHS
     Route: 042
     Dates: start: 20180315
  2. OCREVUS [Suspect]
     Active Substance: OCRELIZUMAB
     Route: 042
     Dates: start: 20180315
  3. OCREVUS [Suspect]
     Active Substance: OCRELIZUMAB
     Route: 042
     Dates: start: 20190402
  4. OCREVUS [Suspect]
     Active Substance: OCRELIZUMAB
     Route: 042
  5. OCREVUS [Suspect]
     Active Substance: OCRELIZUMAB
     Route: 042
  6. OCREVUS [Suspect]
     Active Substance: OCRELIZUMAB
     Route: 042
  7. OCREVUS [Suspect]
     Active Substance: OCRELIZUMAB
     Route: 042
  8. OCREVUS [Suspect]
     Active Substance: OCRELIZUMAB
     Route: 042
  9. DIPHENHYDRAMINE [Concomitant]
     Active Substance: DIPHENHYDRAMINE
     Indication: Premedication
     Dosage: 50 MG PO/IV 30-60 MIN PRIOR TO EACH INFUSION
     Dates: start: 20180315, end: 20180315
  10. METHYLPREDNISOLONE [Concomitant]
     Active Substance: METHYLPREDNISOLONE
     Indication: Premedication
     Dosage: 100 MG IV 30 MIN PRIOR TO EACH INFUSION
     Route: 042
     Dates: start: 20180315, end: 20180315
  11. ACETAMINOPHEN [Concomitant]
     Active Substance: ACETAMINOPHEN
     Indication: Premedication
     Dosage: 1000 MG PO 30-60 MIN PRIOR TO EACH INFUSION
     Route: 048
     Dates: start: 20180315, end: 20180315
  12. CYMBALTA [Concomitant]
     Active Substance: DULOXETINE HYDROCHLORIDE
  13. GABAPENTIN [Concomitant]
     Active Substance: GABAPENTIN
     Dosage: AT BED TIME
  14. AMITRIPTYLINE [Concomitant]
     Active Substance: AMITRIPTYLINE
  15. AMOXICILLIN\CLAVULANATE POTASSIUM [Concomitant]
     Active Substance: AMOXICILLIN\CLAVULANATE POTASSIUM

REACTIONS (20)
  - Nasopharyngitis [Recovering/Resolving]
  - Gastroenteritis viral [Recovering/Resolving]
  - Cystitis [Recovered/Resolved]
  - Kidney infection [Recovered/Resolved]
  - Infusion related reaction [Recovered/Resolved]
  - Pyrexia [Not Recovered/Not Resolved]
  - Balance disorder [Recovered/Resolved]
  - Visual impairment [Recovered/Resolved]
  - Sinus disorder [Recovered/Resolved]
  - Cough [Not Recovered/Not Resolved]
  - Nasal congestion [Not Recovered/Not Resolved]
  - Diplopia [Not Recovered/Not Resolved]
  - Vomiting [Recovered/Resolved]
  - Infusion related reaction [Recovered/Resolved]
  - Nausea [Unknown]
  - Lower respiratory tract infection [Not Recovered/Not Resolved]
  - Ear infection [Not Recovered/Not Resolved]
  - Nasopharyngitis [Not Recovered/Not Resolved]
  - Pharyngitis streptococcal [Recovering/Resolving]
  - Tremor [Not Recovered/Not Resolved]

NARRATIVE: CASE EVENT DATE: 20180315
